FAERS Safety Report 7968387-0 (Version None)
Quarter: 2011Q4

REPORT INFORMATION
  Report Type: 
  Country: None (occurrence: None)
  Receive Date: 20111207
  Receipt Date: 20111130
  Transmission Date: 20120403
  Serious: Yes (Hospitalization)
  Sender: FDA-Public Use
  Company Number: AUR-APL-2011-06027

PATIENT
  Age: 74 Year
  Sex: Male

DRUGS (15)
  1. LEVOTHYROXINE SODIUM [Concomitant]
  2. PLAVIX [Concomitant]
  3. ENOXAPARIN SODIUM [Concomitant]
  4. MOVICOL (POLYETHYL. GLYC. W/POTAS. CHLOR./SOD. BICARB.) [Concomitant]
  5. LANTUS [Concomitant]
  6. VICTOZA [Concomitant]
  7. FORMOTEROL FUMARATE [Concomitant]
  8. EMSELEX (DARIFENACIN) [Concomitant]
  9. MIRTAZAPINE [Suspect]
     Indication: PRODUCT USED FOR UNKNOWN INDICATION
     Dosage: 7.5 MG, ORAL
     Route: 048
     Dates: start: 20110504, end: 20110505
  10. ASS (ACETYLSALYLIC ACID) [Concomitant]
  11. ALLOPURINOL [Concomitant]
  12. TAMSULOSIN HCL [Concomitant]
  13. PANTOPRAZOLE SODIUM [Concomitant]
  14. DIOVAN [Concomitant]
  15. SIMVASTATIN [Concomitant]

REACTIONS (2)
  - ELECTROCARDIOGRAM T WAVE INVERSION [None]
  - ELECTROCARDIOGRAM QT PROLONGED [None]
